FAERS Safety Report 20186170 (Version 4)
Quarter: 2023Q1

REPORT INFORMATION
  Report Type: Other
  Country: CO (occurrence: CO)
  Receive Date: 20211215
  Receipt Date: 20230214
  Transmission Date: 20230417
  Serious: Yes (Other)
  Sender: FDA-Public Use
  Company Number: CO-002147023-NVSC2021CO261205

PATIENT
  Age: 16 Year
  Sex: Female
  Weight: 45 kg

DRUGS (9)
  1. XOLAIR [Suspect]
     Active Substance: OMALIZUMAB
     Indication: Asthma
     Dosage: UNK (4 YEARS AGO)
     Route: 058
     Dates: start: 2012
  2. XOLAIR [Suspect]
     Active Substance: OMALIZUMAB
     Route: 058
     Dates: end: 2018
  3. XOLAIR [Suspect]
     Active Substance: OMALIZUMAB
     Dosage: 450 MG (EVERY 15 DAYS)
     Route: 058
     Dates: end: 201801
  4. XOLAIR [Suspect]
     Active Substance: OMALIZUMAB
     Dosage: 450 MG (EVERY 15 DAYS)
     Route: 058
     Dates: start: 20211202
  5. XOLAIR [Suspect]
     Active Substance: OMALIZUMAB
     Dosage: 900 MG, QMO (SOLUTION)
     Route: 058
  6. MONTELUKAST [Concomitant]
     Active Substance: MONTELUKAST SODIUM
     Indication: Asthma
     Dosage: UNK, Q24H
     Route: 065
  7. TIOTROPIUM [Concomitant]
     Active Substance: TIOTROPIUM
     Indication: Asthma
     Dosage: UNK UNK, Q12H
     Route: 065
  8. DESLORATADINE [Concomitant]
     Active Substance: DESLORATADINE
     Indication: Food allergy
     Dosage: UNK, PRN
     Route: 048
     Dates: start: 2020
  9. SYMBICORT [Concomitant]
     Active Substance: BUDESONIDE\FORMOTEROL FUMARATE DIHYDRATE
     Indication: Asthma
     Dosage: UNK UNK, BID (2 PUFFS)
     Route: 048
     Dates: start: 2021

REACTIONS (16)
  - Cardiac failure [Unknown]
  - Asthmatic crisis [Unknown]
  - Hypertensive crisis [Unknown]
  - Chest pain [Unknown]
  - Pain [Unknown]
  - Pain in extremity [Unknown]
  - Musculoskeletal chest pain [Unknown]
  - Myositis [Unknown]
  - Myalgia [Unknown]
  - Arthralgia [Unknown]
  - Pruritus [Unknown]
  - Asthma [Unknown]
  - General physical health deterioration [Unknown]
  - Scratch [Unknown]
  - Product administration error [Unknown]
  - Drug ineffective [Unknown]

NARRATIVE: CASE EVENT DATE: 20220401
